FAERS Safety Report 8956283 (Version 1)
Quarter: 2012Q4

REPORT INFORMATION
  Report Type: Report from Study
  Country: US (occurrence: US)
  Receive Date: 20121210
  Receipt Date: 20121210
  Transmission Date: 20130627
  Serious: Yes (Hospitalization)
  Sender: FDA-Public Use
  Company Number: US-ASTELLAS-2012US011901

PATIENT
  Age: 86 Year
  Sex: Male

DRUGS (2)
  1. ERLOTINIB TABLET [Suspect]
     Indication: LUNG CARCINOMA CELL TYPE UNSPECIFIED STAGE IV
     Dosage: UNK
     Route: 048
     Dates: start: 20100903
  2. FASLODEX [Suspect]
     Indication: LUNG CARCINOMA CELL TYPE UNSPECIFIED STAGE IV
     Dosage: UNK
     Route: 065
     Dates: start: 20100903

REACTIONS (4)
  - Hypokalaemia [Recovered/Resolved]
  - Hypomagnesaemia [Recovered/Resolved]
  - Orthostatic hypotension [Recovering/Resolving]
  - Pneumonia [Recovered/Resolved]
